FAERS Safety Report 4708388-9 (Version None)
Quarter: 2005Q3

REPORT INFORMATION
  Report Type: 
  Country: None (occurrence: None)
  Receive Date: 20050706
  Receipt Date: 20050706
  Transmission Date: 20060218
  Serious: No
  Sender: FDA-Public Use
  Company Number: None

PATIENT
  Sex: Female
  Weight: 63.9 kg

DRUGS (2)
  1. PACLITAXEL [Suspect]
     Indication: NON-SMALL CELL LUNG CANCER
     Dosage: 200 MG/M2 IV OVER 3HR ON DAY 1, EVERY 21 DAYS X 6 DAYS
     Dates: start: 20031216
  2. CARBOPLATIN [Suspect]
     Dosage: 6 IV OVER 15-30 MIN ON DAY 1, EVERY 21 DAYS X 6 CYCLES

REACTIONS (1)
  - PULMONARY EMBOLISM [None]
